FAERS Safety Report 15294433 (Version 3)
Quarter: 2018Q3

REPORT INFORMATION
  Report Type: Report from Study
  Country: DE (occurrence: DE)
  Receive Date: 20180820
  Receipt Date: 20180827
  Transmission Date: 20181010
  Serious: Yes (Hospitalization)
  Sender: FDA-Public Use
  Company Number: DE-ROCHE-2171740

PATIENT
  Sex: Male

DRUGS (6)
  1. PEGFILGRASTIM [Suspect]
     Active Substance: PEGFILGRASTIM
     Indication: B-CELL LYMPHOMA
     Route: 058
     Dates: start: 20180805, end: 20180805
  2. RITUXIMAB. [Suspect]
     Active Substance: RITUXIMAB
     Indication: B-CELL LYMPHOMA
     Dosage: DOSE AS PER PROTOCOL: 375 MG/SQM?MOST RECENT DOSE OF RITUXIMAB PRIOR TO SAE: 30/JUL/2018
     Route: 042
     Dates: start: 20180730, end: 20180730
  3. DOXORUBICINE [Suspect]
     Active Substance: DOXORUBICIN
     Indication: B-CELL LYMPHOMA
     Dosage: DOSE AS PER PROTOCOL: 50 MG/SQM?MOST RECENT DOSE PRIOR TO SAE: 01/AUG/2018
     Route: 042
     Dates: start: 20180801, end: 20180801
  4. VINCRISTINE [Suspect]
     Active Substance: VINCRISTINE
     Indication: B-CELL LYMPHOMA
     Dosage: MOST RECENT DOSE PRIOR TO SAE: 01/AUG/2018
     Route: 042
     Dates: start: 20180801, end: 20180801
  5. CYCLOPHOSPHAMIDE. [Suspect]
     Active Substance: CYCLOPHOSPHAMIDE
     Indication: B-CELL LYMPHOMA
     Dosage: DOSE AS PER PROTOCOL: 750 MG/SQM?MOST RECENT DOSE PRIOR TO SAE: 01/AUG/2018
     Route: 042
     Dates: start: 20180801, end: 20180801
  6. PREDNISONE. [Suspect]
     Active Substance: PREDNISONE
     Indication: B-CELL LYMPHOMA
     Dosage: MOST RECENT DOSE PRIOR TO SAE: 01/AUG/2018
     Route: 048
     Dates: start: 20180801, end: 20180805

REACTIONS (2)
  - Pyrexia [Recovered/Resolved]
  - Acute kidney injury [Recovered/Resolved]

NARRATIVE: CASE EVENT DATE: 20180814
